FAERS Safety Report 19872859 (Version 1)
Quarter: 2021Q3

REPORT INFORMATION
  Report Type: Spontaneous
  Country: US (occurrence: US)
  Receive Date: 20210922
  Receipt Date: 20210922
  Transmission Date: 20211014
  Serious: Yes (Other)
  Sender: FDA-Public Use
  Company Number: US-ASTRAZENECA-2021A727472

PATIENT
  Age: 72 Year
  Sex: Male
  Weight: 64.4 kg

DRUGS (1)
  1. FASENRA [Suspect]
     Active Substance: BENRALIZUMAB
     Indication: ASTHMA
     Dosage: 30 MG EVERY 6 WEEKS
     Route: 058

REACTIONS (8)
  - Adverse event [Unknown]
  - Skin lesion [Not Recovered/Not Resolved]
  - Ulcer [Not Recovered/Not Resolved]
  - Rash [Not Recovered/Not Resolved]
  - Blister [Not Recovered/Not Resolved]
  - Dyspnoea [Unknown]
  - Product use issue [Unknown]
  - Immunosuppression [Unknown]

NARRATIVE: CASE EVENT DATE: 202103
